FAERS Safety Report 7901231-6 (Version None)
Quarter: 2011Q4

REPORT INFORMATION
  Report Type: 
  Country: None (occurrence: None)
  Receive Date: 20111108
  Receipt Date: 20111028
  Transmission Date: 20120403
  Serious: Yes (Death, Hospitalization, Other)
  Sender: FDA-Public Use
  Company Number: PHFR2011GB05511

PATIENT
  Sex: Male

DRUGS (1)
  1. CLOZARIL [Suspect]
     Indication: SCHIZOPHRENIA
     Route: 048
     Dates: start: 20041222

REACTIONS (9)
  - HEPATIC FAILURE [None]
  - GAMMA-GLUTAMYLTRANSFERASE INCREASED [None]
  - JAUNDICE [None]
  - ANTIPSYCHOTIC DRUG LEVEL ABOVE THERAPEUTIC [None]
  - BLOOD ALKALINE PHOSPHATASE INCREASED [None]
  - ALANINE AMINOTRANSFERASE INCREASED [None]
  - ASCITES [None]
  - FLUID RETENTION [None]
  - BLOOD BILIRUBIN INCREASED [None]
